FAERS Safety Report 4569959-6 (Version None)
Quarter: 2005Q1

REPORT INFORMATION
  Report Type: 
  Country: None (occurrence: None)
  Receive Date: 20050131
  Receipt Date: 20050122
  Transmission Date: 20050727
  Serious: Yes (Hospitalization)
  Sender: FDA-Public Use
  Company Number: 230291K05USA

PATIENT
  Age: 60 Year
  Sex: Female

DRUGS (5)
  1. REBIF [Suspect]
     Indication: MULTIPLE SCLEROSIS
     Dosage: 44 MCG, 3 IN 1 WEEKS
     Dates: start: 20030101
  2. DITROPAN [Concomitant]
  3. EFFEXOR [Concomitant]
  4. METAMUCIL (METAMUCIL ^PROCTER + GAMBLE^) [Concomitant]
  5. TUMS (CALCIUM CARBONATE) [Concomitant]

REACTIONS (7)
  - BACK INJURY [None]
  - CERVICAL MYELOPATHY [None]
  - FALL [None]
  - HEAD INJURY [None]
  - INTERVERTEBRAL DISC PROTRUSION [None]
  - SPINAL CORD OEDEMA [None]
  - SPINAL OSTEOARTHRITIS [None]
